FAERS Safety Report 5078687-2 (Version None)
Quarter: 2006Q3

REPORT INFORMATION
  Report Type: 
  Country: None (occurrence: None)
  Receive Date: 20060720
  Receipt Date: 20060620
  Transmission Date: 20061208
  Serious: Yes (Other)
  Sender: FDA-Public Use
  Company Number: HQWYE360323JUN06

PATIENT
  Age: 53 Year
  Sex: Female
  Weight: 68.1 kg

DRUGS (2)
  1. ADVIL PM [Suspect]
     Indication: INSOMNIA
     Dosage: 2 CAPLETS ONCE, ORAL
     Route: 048
     Dates: start: 20060601, end: 20060601
  2. ADVIL PM [Suspect]
     Indication: PAIN
     Dosage: 2 CAPLETS ONCE, ORAL
     Route: 048
     Dates: start: 20060601, end: 20060601

REACTIONS (2)
  - ANXIETY [None]
  - FEELING JITTERY [None]
